FAERS Safety Report 25090869 (Version 1)
Quarter: 2025Q1

REPORT INFORMATION
  Report Type: Report from Study
  Country: US (occurrence: US)
  Receive Date: 20250318
  Receipt Date: 20250318
  Transmission Date: 20250408
  Serious: Yes (Other)
  Sender: UCB
  Company Number: US-UCBSA-2025005551

PATIENT
  Sex: Female

DRUGS (1)
  1. BIMEKIZUMAB [Suspect]
     Active Substance: BIMEKIZUMAB
     Indication: Psoriasis
     Dosage: 320 MILLIGRAM, EV 4 WEEKS FOR 5 DOSES THEN EVERY 8 WEEKS THEREAFTER
     Route: 058
     Dates: start: 20241227

REACTIONS (5)
  - Kidney infection [Recovering/Resolving]
  - Injection site pain [Recovered/Resolved]
  - Influenza [Recovering/Resolving]
  - Sinus disorder [Recovering/Resolving]
  - Psoriasis [Recovering/Resolving]

NARRATIVE: CASE EVENT DATE: 20250101
